FAERS Safety Report 13073175 (Version 1)
Quarter: 2016Q4

REPORT INFORMATION
  Report Type: Spontaneous
  Country: US (occurrence: US)
  Receive Date: 20161229
  Receipt Date: 20161229
  Transmission Date: 20170207
  Serious: Yes (Hospitalization, Other)
  Sender: FDA-Public Use
  Company Number: US-ELI_LILLY_AND_COMPANY-US201612008229

PATIENT
  Age: 55 Year
  Sex: Female

DRUGS (9)
  1. LANTUS [Concomitant]
     Active Substance: INSULIN GLARGINE
     Dosage: 65 U, UNK
  2. METFORMIN [Concomitant]
     Active Substance: METFORMIN HYDROCHLORIDE
     Dosage: UNK UNK, QD
  3. LIPITOR [Concomitant]
     Active Substance: ATORVASTATIN CALCIUM
  4. HUMALOG [Suspect]
     Active Substance: INSULIN LISPRO
     Dosage: 15-18 U, TID
     Route: 058
  5. AMITRIPTYLINE                      /00002202/ [Concomitant]
     Active Substance: AMITRIPTYLINE
     Dosage: UNK
  6. GABAPENTIN. [Concomitant]
     Active Substance: GABAPENTIN
  7. HUMALOG [Suspect]
     Active Substance: INSULIN LISPRO
     Indication: TYPE 2 DIABETES MELLITUS
     Dosage: 12-15 U, TID
     Route: 058
  8. ASPIRIN                            /00002701/ [Concomitant]
     Active Substance: ASPIRIN
     Dosage: 81 MG, QD
  9. NORTRIPTYLINE [Concomitant]
     Active Substance: NORTRIPTYLINE

REACTIONS (8)
  - Chest pain [Recovered/Resolved]
  - Dyspnoea [Recovered/Resolved]
  - Gangrene [Unknown]
  - Vitreous floaters [Unknown]
  - Eye disorder [Unknown]
  - Osteomyelitis [Unknown]
  - Visual impairment [Not Recovered/Not Resolved]
  - Nasopharyngitis [Recovered/Resolved]

NARRATIVE: CASE EVENT DATE: 20061026
